FAERS Safety Report 5143782-6 (Version None)
Quarter: 2006Q4

REPORT INFORMATION
  Report Type: 
  Country: None (occurrence: None)
  Receive Date: 20061106
  Receipt Date: 20061023
  Transmission Date: 20070319
  Serious: Yes (Other)
  Sender: FDA-Public Use
  Company Number: PHHO2006GB17668

PATIENT
  Age: 29 Year
  Sex: Female

DRUGS (2)
  1. SYNTOCINON [Suspect]
     Indication: LABOUR STIMULATION
     Route: 042
  2. MISOPROSTOL [Concomitant]
     Indication: LABOUR INDUCTION
     Dosage: 50 MCG
     Route: 067
     Dates: start: 20060819, end: 20060819

REACTIONS (2)
  - DRUG EXPOSURE DURING PREGNANCY [None]
  - VENTOUSE EXTRACTION [None]
